FAERS Safety Report 9395423 (Version 2)
Quarter: 2013Q4

REPORT INFORMATION
  Report Type: Spontaneous
  Country: US (occurrence: US)
  Receive Date: 20130711
  Receipt Date: 20131010
  Transmission Date: 20140711
  Serious: No
  Sender: FDA-Public Use
  Company Number: US-ASTELLAS-2013US006168

PATIENT
  Age: 77 Year
  Sex: Female

DRUGS (3)
  1. MYRBETRIQ [Suspect]
     Indication: URINARY TRACT INFECTION
     Dosage: 25 MG, UNKNOWN/D
     Route: 065
     Dates: start: 20130605
  2. MYRBETRIQ [Suspect]
     Indication: BLOOD URINE PRESENT
  3. UNSPECIFIED MEDICATION [Concomitant]
     Indication: GLAUCOMA
     Dosage: UNK
     Route: 065

REACTIONS (3)
  - Off label use [Unknown]
  - Ocular hyperaemia [Recovered/Resolved]
  - Glassy eyes [Recovered/Resolved]
